FAERS Safety Report 20985725 (Version 1)
Quarter: 2022Q2

REPORT INFORMATION
  Report Type: Spontaneous
  Country: PR (occurrence: PR)
  Receive Date: 20220621
  Receipt Date: 20220621
  Transmission Date: 20220721
  Serious: No
  Sender: FDA-Public Use
  Company Number: PR-UNITED THERAPEUTICS-UNT-2022-012975

PATIENT
  Sex: Female

DRUGS (2)
  1. REMODULIN [Suspect]
     Active Substance: TREPROSTINIL
     Indication: Pulmonary arterial hypertension
     Dosage: UNK, CONTINUING
     Route: 058
     Dates: start: 201911
  2. REMODULIN [Suspect]
     Active Substance: TREPROSTINIL
     Dosage: 0.0411 ?G/KG, CONTINUING
     Route: 058

REACTIONS (5)
  - Device use error [Unknown]
  - Accidental overdose [Unknown]
  - Erythema [Unknown]
  - Headache [Unknown]
  - Dizziness [Unknown]
